FAERS Safety Report 18898802 (Version 1)
Quarter: 2021Q1

REPORT INFORMATION
  Report Type: Spontaneous
  Country: US (occurrence: US)
  Receive Date: 20210215
  Receipt Date: 20210215
  Transmission Date: 20210420
  Serious: Yes (Death)
  Sender: FDA-Public Use
  Company Number: None

PATIENT
  Age: 92 Year
  Sex: Female

DRUGS (2)
  1. LEUKERAN [Concomitant]
     Active Substance: CHLORAMBUCIL
     Dates: start: 20200925, end: 20201231
  2. LEUKERAN [Suspect]
     Active Substance: CHLORAMBUCIL
     Indication: LEUKAEMIA
     Route: 048
     Dates: start: 20200925, end: 20201231

REACTIONS (1)
  - Death [None]

NARRATIVE: CASE EVENT DATE: 20210212
